FAERS Safety Report 12423951 (Version 1)
Quarter: 2016Q2

REPORT INFORMATION
  Report Type: Spontaneous
  Country: US (occurrence: US)
  Receive Date: 20160601
  Receipt Date: 20160601
  Transmission Date: 20160815
  Serious: No
  Sender: FDA-Public Use
  Company Number: US-NOVEN PHARMACEUTICALS, INC.-US2016000416

PATIENT

DRUGS (1)
  1. DAYTRANA [Suspect]
     Active Substance: METHYLPHENIDATE
     Indication: ATTENTION DEFICIT/HYPERACTIVITY DISORDER
     Dosage: UNK, UNKNOWN
     Route: 062
     Dates: start: 201509

REACTIONS (13)
  - Oral candidiasis [Unknown]
  - Nervousness [Unknown]
  - Abnormal behaviour [Unknown]
  - Lethargy [Unknown]
  - Psychomotor hyperactivity [Unknown]
  - Feeling abnormal [Unknown]
  - Dizziness [Unknown]
  - Blood pressure increased [Unknown]
  - Drug prescribing error [Not Recovered/Not Resolved]
  - Blood glucose increased [Unknown]
  - Vision blurred [Unknown]
  - Irritability [Unknown]
  - Chest pain [Unknown]

NARRATIVE: CASE EVENT DATE: 201509
